FAERS Safety Report 23326108 (Version 6)
Quarter: 2024Q4

REPORT INFORMATION
  Report Type: Report from Study
  Country: JP (occurrence: JP)
  Receive Date: 20231221
  Receipt Date: 20241014
  Transmission Date: 20250115
  Serious: Yes (Hospitalization)
  Sender: ABBVIE
  Company Number: JP-ABBVIE-5541381

PATIENT
  Age: 63 Year
  Sex: Female
  Weight: 36 kg

DRUGS (20)
  1. CARBIDOPA\LEVODOPA [Suspect]
     Active Substance: CARBIDOPA\LEVODOPA
     Indication: Product used for unknown indication
     Route: 050
  2. CARBIDOPA\LEVODOPA [Suspect]
     Active Substance: CARBIDOPA\LEVODOPA
  3. FOSCARBIDOPA\FOSLEVODOPA [Suspect]
     Active Substance: FOSCARBIDOPA\FOSLEVODOPA
     Indication: Parkinson^s disease
     Dosage: STANDARD: 0.30 ML/H, NIGHT TIME: 0.27 ML/H, OTHER: 0.32 ML/H
     Route: 058
     Dates: start: 20231127, end: 20231216
  4. FOSCARBIDOPA\FOSLEVODOPA [Suspect]
     Active Substance: FOSCARBIDOPA\FOSLEVODOPA
     Indication: Parkinson^s disease
     Dosage: STANDARD: 0.30 ML/H, NIGHT TIME: 0.27 ML/H, OTHER: 0.32 ML/H
     Route: 058
     Dates: start: 20231124
  5. FOSCARBIDOPA\FOSLEVODOPA [Suspect]
     Active Substance: FOSCARBIDOPA\FOSLEVODOPA
     Indication: Parkinson^s disease
     Dosage: STANDARD: 0.23 ML/H, NIGHT TIME: 0.21 ML/H, OTHER: 0.25 ML/H
     Route: 058
     Dates: start: 20231014
  6. FOSCARBIDOPA\FOSLEVODOPA [Suspect]
     Active Substance: FOSCARBIDOPA\FOSLEVODOPA
     Indication: Parkinson^s disease
     Dosage: STANDARD: 0.19 ML/H, NIGHT TIME: 0.18 ML/H, OTHER: 0.20 ML/H
     Route: 058
     Dates: start: 20231006, end: 20231011
  7. FOSCARBIDOPA\FOSLEVODOPA [Suspect]
     Active Substance: FOSCARBIDOPA\FOSLEVODOPA
     Indication: Parkinson^s disease
     Dosage: STANDARD: 0.18 ML/H, NIGHT TIME: 0.16 ML/H, OTHER: 0.20 ML/H
     Route: 058
     Dates: start: 20231003, end: 20231005
  8. FOSCARBIDOPA\FOSLEVODOPA [Suspect]
     Active Substance: FOSCARBIDOPA\FOSLEVODOPA
     Indication: Parkinson^s disease
     Dosage: STANDARD: 0.21 ML/H, NIGHT TIME: 0.19 ML/H, OTHER: 0.23 ML/H
     Route: 058
     Dates: start: 20231012, end: 20231013
  9. SAFINAMIDE MESYLATE [Suspect]
     Active Substance: SAFINAMIDE MESYLATE
     Indication: Parkinson^s disease
     Route: 048
     Dates: end: 20231111
  10. SAFINAMIDE MESYLATE [Suspect]
     Active Substance: SAFINAMIDE MESYLATE
     Indication: Parkinson^s disease
     Route: 048
     Dates: start: 20231118
  11. SAFINAMIDE MESYLATE [Suspect]
     Active Substance: SAFINAMIDE MESYLATE
     Indication: Parkinson^s disease
     Route: 048
     Dates: start: 20231112
  12. ROTIGOTINE [Concomitant]
     Active Substance: ROTIGOTINE
     Indication: Product used for unknown indication
     Route: 065
  13. OLANZAPINE [Concomitant]
     Active Substance: OLANZAPINE
     Indication: Hallucination
     Route: 065
     Dates: start: 20231121
  14. OLANZAPINE [Concomitant]
     Active Substance: OLANZAPINE
     Indication: Hallucination
     Route: 065
     Dates: start: 20231127
  15. MOSAPRIDE CITRATE DIHYDRATE [Concomitant]
     Active Substance: MOSAPRIDE CITRATE DIHYDRATE
     Indication: Parkinson^s disease
     Dosage: TIME INTERVAL: 0.33333333 DAYS: 45 MILLIGRAM
     Route: 048
  16. ESZOPICLONE [Concomitant]
     Active Substance: ESZOPICLONE
     Indication: Insomnia
     Route: 048
  17. ROPINIROLE HYDROCHLORIDE [Suspect]
     Active Substance: ROPINIROLE HYDROCHLORIDE
     Indication: Parkinson^s disease
     Route: 062
     Dates: end: 20231121
  18. ROPINIROLE HYDROCHLORIDE [Suspect]
     Active Substance: ROPINIROLE HYDROCHLORIDE
     Indication: Parkinson^s disease
     Route: 065
     Dates: start: 20231111, end: 20231118
  19. CARBIDOPA AND LEVODOPA [Concomitant]
     Active Substance: CARBIDOPA\LEVODOPA
     Indication: Product used for unknown indication
     Dosage: TIME INTERVAL: 0.125 DAYS: 75 TO 50 MG/8 TIMES DAILY (500 TO 550 MG/DAY)
     Route: 048
     Dates: start: 20231124
  20. CLONAZEPAM [Concomitant]
     Active Substance: CLONAZEPAM
     Indication: Parkinson^s disease
     Route: 048

REACTIONS (31)
  - Persecutory delusion [Recovered/Resolved]
  - Drug ineffective [Unknown]
  - On and off phenomenon [Unknown]
  - Therapeutic response shortened [Unknown]
  - Delusion [Recovered/Resolved]
  - Dyskinesia [Unknown]
  - Therapeutic response shortened [Unknown]
  - Delirium [Unknown]
  - Motor dysfunction [Recovered/Resolved]
  - Drug ineffective [Unknown]
  - Hallucination [Recovered/Resolved]
  - Infusion site induration [Recovered/Resolved]
  - Hallucination [Recovered/Resolved]
  - Agitation [Not Recovered/Not Resolved]
  - Asthenia [Unknown]
  - Sense of oppression [Unknown]
  - Therapeutic product effect decreased [Unknown]
  - Malaise [Unknown]
  - Infusion site discharge [Unknown]
  - Malaise [Unknown]
  - Malaise [Unknown]
  - Infusion site discolouration [Unknown]
  - Hypoacusis [Unknown]
  - Malaise [Unknown]
  - Medical device site paraesthesia [Recovered/Resolved]
  - Malaise [Unknown]
  - Malaise [Unknown]
  - Therapeutic product effect incomplete [Unknown]
  - Headache [Unknown]
  - Skin fragility [Unknown]
  - Infusion site induration [Unknown]

NARRATIVE: CASE EVENT DATE: 20220301
